FAERS Safety Report 8530217-6 (Version None)
Quarter: 2012Q3

REPORT INFORMATION
  Report Type: 
  Country: None (occurrence: None)
  Receive Date: 20120723
  Receipt Date: 20120717
  Transmission Date: 20120928
  Serious: Yes (Other)
  Sender: FDA-Public Use
  Company Number: FR-PFIZER INC-2012094567

PATIENT
  Age: 17 Year
  Sex: Female
  Weight: 44 kg

DRUGS (5)
  1. CRIZOTINIB [Suspect]
     Dosage: 250 MG, 1X/DAY
     Route: 048
     Dates: start: 20120522
  2. CRIZOTINIB [Suspect]
     Dosage: 250 MG, 1X/DAY
     Route: 048
     Dates: start: 20120406, end: 20120427
  3. CRIZOTINIB [Suspect]
     Indication: LUNG ADENOCARCINOMA
     Dosage: 250 MG, 2X/DAY
     Route: 048
     Dates: start: 20120314, end: 20120330
  4. PROPRANOLOL [Concomitant]
     Indication: TACHYCARDIA
     Dosage: 40 MG, 2X/DAY
     Route: 048
     Dates: start: 20120220, end: 20120404
  5. TRAMADOL HCL [Concomitant]
     Indication: PAIN
     Dosage: 50 MG, 2X/DAY
     Route: 048
     Dates: start: 20120220

REACTIONS (3)
  - NEUTROPENIA [None]
  - OVERDOSE [None]
  - AUTOIMMUNE HEPATITIS [None]
